FAERS Safety Report 19750854 (Version 1)
Quarter: 2021Q3

REPORT INFORMATION
  Report Type: Report from Study
  Country: US (occurrence: US)
  Receive Date: 20210826
  Receipt Date: 20210826
  Transmission Date: 20211014
  Serious: Yes (Hospitalization)
  Sender: FDA-Public Use
  Company Number: US-JNJFOC-20210834385

PATIENT
  Age: 48 Year
  Sex: Female

DRUGS (3)
  1. SPRAVATO [Suspect]
     Active Substance: ESKETAMINE
     Indication: DEPRESSION
     Dates: start: 20210212, end: 20210212
  2. SPRAVATO [Suspect]
     Active Substance: ESKETAMINE
     Dates: start: 20210309, end: 20210309
  3. SPRAVATO [Suspect]
     Active Substance: ESKETAMINE
     Dosage: LAST DOSE 09?JUL?2021
     Dates: start: 20210312

REACTIONS (1)
  - Hospitalisation [Unknown]

NARRATIVE: CASE EVENT DATE: 20210816
